FAERS Safety Report 5863541-6 (Version None)
Quarter: 2008Q3

REPORT INFORMATION
  Report Type: 
  Country: None (occurrence: None)
  Receive Date: 20080828
  Receipt Date: 20080827
  Transmission Date: 20090109
  Serious: Yes (Hospitalization)
  Sender: FDA-Public Use
  Company Number: US-BOEHRINGER INGELHEIM GMBH, GERMANY-2008-BP-08982BP

PATIENT
  Sex: Male

DRUGS (12)
  1. SPIRIVA [Suspect]
     Indication: CHRONIC OBSTRUCTIVE PULMONARY DISEASE
     Route: 055
     Dates: start: 20070101
  2. MULTIVITAMIN [Concomitant]
     Indication: MACULAR DEGENERATION
  3. ALLOPURINOL [Concomitant]
     Indication: GOUT
  4. DIGITEK [Concomitant]
     Indication: ATRIAL FIBRILLATION
  5. FUROSEMIDE [Concomitant]
     Indication: CARDIAC FAILURE CONGESTIVE
  6. SPIRONOLACTONE [Concomitant]
     Indication: CARDIAC FAILURE CONGESTIVE
  7. OMEPRAZOLE [Concomitant]
     Indication: DYSPEPSIA
  8. CHLORPHENIRAMINE MALEATE [Concomitant]
     Indication: POSTNASAL DRIP
  9. METAMUCIL [Concomitant]
     Indication: CONSTIPATION
  10. PERI-COLACE [Concomitant]
     Indication: CONSTIPATION
  11. TYLENOL (CAPLET) [Concomitant]
     Indication: SLEEP DISORDER
  12. GENERIC DUONEB [Concomitant]
     Indication: CHRONIC OBSTRUCTIVE PULMONARY DISEASE

REACTIONS (5)
  - HAEMOGLOBIN DECREASED [None]
  - PNEUMONIA [None]
  - URINARY RETENTION [None]
  - URINARY TRACT INFECTION [None]
  - WHITE BLOOD CELL COUNT INCREASED [None]
